FAERS Safety Report 8275756-0 (Version None)
Quarter: 2012Q2

REPORT INFORMATION
  Report Type: 
  Country: None (occurrence: None)
  Receive Date: 20120412
  Receipt Date: 20120403
  Transmission Date: 20120825
  Serious: Yes (Other)
  Sender: FDA-Public Use
  Company Number: US-CELGENEUS-163-21880-12011139

PATIENT
  Sex: Female
  Weight: 117.13 kg

DRUGS (16)
  1. PRAVASTATIN [Concomitant]
     Dosage: 80 MILLIGRAM
     Route: 048
  2. ASPIRIN [Concomitant]
     Dosage: 81 MILLIGRAM
     Route: 048
     Dates: start: 20040101
  3. NEXIUM [Concomitant]
     Dosage: 40 MILLIGRAM
     Route: 048
     Dates: start: 20090101
  4. GLIPIZIDE [Concomitant]
     Dosage: 10 MILLIGRAM
     Route: 048
     Dates: start: 19940101
  5. METFORMIN HCL [Concomitant]
     Dosage: 1000 MILLIGRAM
     Route: 048
     Dates: start: 19940101
  6. LOSARTAN POTASSIUM [Concomitant]
     Dosage: 100 MILLIGRAM
     Route: 048
  7. PLAVIX [Concomitant]
     Dosage: 75 MILLIGRAM
     Route: 048
     Dates: start: 20050101
  8. XANAX [Concomitant]
     Route: 065
  9. METOPROLOL TARTRATE [Concomitant]
     Dosage: 25 MILLIGRAM
     Route: 048
     Dates: start: 20020101
  10. COUMADIN [Concomitant]
     Dosage: 5 MILLIGRAM
     Route: 048
     Dates: start: 20120206
  11. REVLIMID [Suspect]
     Indication: MULTIPLE MYELOMA
     Dosage: 25 MILLIGRAM
     Route: 048
     Dates: start: 20111213, end: 20120403
  12. LISINOPRIL [Concomitant]
     Dosage: 45/40
     Route: 050
     Dates: start: 19940101
  13. LASIX [Concomitant]
     Dosage: 40 MILLIGRAM
     Route: 048
     Dates: start: 20020101
  14. POTASSIUM [Concomitant]
     Dosage: 10 MILLIGRAM
     Route: 048
     Dates: start: 20020101
  15. INSULIN [Concomitant]
     Route: 065
  16. LOVENOX [Concomitant]
     Route: 058
     Dates: start: 20120206

REACTIONS (6)
  - RASH [None]
  - SCOTOMA [None]
  - CYSTITIS [None]
  - NEUROPATHY PERIPHERAL [None]
  - HAEMOPTYSIS [None]
  - INFLUENZA [None]
